FAERS Safety Report 8615213-2 (Version None)
Quarter: 2012Q3

REPORT INFORMATION
  Report Type: 
  Country: None (occurrence: None)
  Receive Date: 20120823
  Receipt Date: 20120730
  Transmission Date: 20120928
  Serious: No
  Sender: FDA-Public Use
  Company Number: US-009507513-1208USA000026

PATIENT

DRUGS (5)
  1. LAMICTAL [Concomitant]
  2. ALBUTEROL [Concomitant]
  3. NEURONTIN [Concomitant]
  4. VITAMINS (UNSPECIFIED) [Concomitant]
  5. NEXPLANON [Suspect]
     Indication: CONTRACEPTION
     Dosage: UNK
     Route: 058
     Dates: start: 20120713

REACTIONS (3)
  - CONTUSION [None]
  - DISCOMFORT [None]
  - ACCIDENT AT HOME [None]
